FAERS Safety Report 24636149 (Version 1)
Quarter: 2024Q4

REPORT INFORMATION
  Report Type: Report from Study
  Country: TR (occurrence: TR)
  Receive Date: 20241119
  Receipt Date: 20241119
  Transmission Date: 20250114
  Serious: Yes (Hospitalization, Other)
  Sender: RANBAXY
  Company Number: TR-SUN PHARMACEUTICAL INDUSTRIES LTD-2024R1-479142

PATIENT
  Sex: Female

DRUGS (2)
  1. SODIUM CHLORIDE [Suspect]
     Active Substance: SODIUM CHLORIDE
     Indication: Placenta accreta
     Dosage: 1,000 CC OF 0,9 NACL SOLUTION
     Route: 065
  2. OXYTOCIN [Suspect]
     Active Substance: OXYTOCIN
     Indication: Placenta accreta
     Dosage: 25 UNITS OF OXYTOCIN WAS STARTED
     Route: 042

REACTIONS (3)
  - Bladder injury [Unknown]
  - Live birth [Unknown]
  - Exposure during pregnancy [Unknown]
